FAERS Safety Report 8546853-7 (Version None)
Quarter: 2012Q3

REPORT INFORMATION
  Report Type: 
  Country: None (occurrence: None)
  Receive Date: 20120727
  Receipt Date: 20120112
  Transmission Date: 20120928
  Serious: No
  Sender: FDA-Public Use
  Company Number: US-ASTRAZENECA-2012SE02469

PATIENT
  Age: 41 Year
  Sex: Female
  Weight: 65.8 kg

DRUGS (5)
  1. LEXAPRO [Concomitant]
     Indication: ANXIETY
  2. SEROQUEL [Suspect]
     Indication: SLEEP DISORDER
     Route: 048
     Dates: start: 20100101
  3. LEXAPRO [Concomitant]
     Indication: DEPRESSION
  4. SEROQUEL [Suspect]
     Route: 048
     Dates: start: 20111001
  5. NEURONTIN [Concomitant]
     Indication: CONVULSION

REACTIONS (9)
  - INSOMNIA [None]
  - OFF LABEL USE [None]
  - DRUG INEFFECTIVE FOR UNAPPROVED INDICATION [None]
  - ANXIETY [None]
  - BIPOLAR DISORDER [None]
  - NASOPHARYNGITIS [None]
  - SINUS OPERATION [None]
  - THINKING ABNORMAL [None]
  - COUGH [None]
